FAERS Safety Report 8010945-1 (Version None)
Quarter: 2011Q4

REPORT INFORMATION
  Report Type: 
  Country: None (occurrence: None)
  Receive Date: 20111228
  Receipt Date: 20111215
  Transmission Date: 20120403
  Serious: Yes (Other)
  Sender: FDA-Public Use
  Company Number: ES-ROCHE-1025174

PATIENT
  Age: 44 Year
  Sex: Female

DRUGS (6)
  1. XOLAIR [Suspect]
     Dates: start: 20111203
  2. FLUTICASONE FUROATE [Concomitant]
  3. CORTICOSTEROID NOS [Concomitant]
  4. XOLAIR [Suspect]
     Indication: ASTHMA
     Dates: start: 20111005
  5. SYMBICORT [Concomitant]
  6. ESCITALOPRAM [Concomitant]

REACTIONS (5)
  - MUSCLE SPASMS [None]
  - ARTHRALGIA [None]
  - OEDEMA PERIPHERAL [None]
  - PAIN IN EXTREMITY [None]
  - SWELLING [None]
